FAERS Safety Report 5071242-X (Version None)
Quarter: 2006Q3

REPORT INFORMATION
  Report Type: 
  Country: None (occurrence: None)
  Receive Date: 20060804
  Receipt Date: 20060616
  Transmission Date: 20061208
  Serious: Yes (Hospitalization)
  Sender: FDA-Public Use
  Company Number: PHFR2006GB02017

PATIENT
  Sex: Female

DRUGS (1)
  1. ESTRADIOL INJ [Suspect]
     Indication: HORMONE REPLACEMENT THERAPY
     Dosage: 1 MG/DAY
     Route: 065
     Dates: start: 19760101

REACTIONS (3)
  - BUNION [None]
  - BUNION OPERATION [None]
  - HOT FLUSH [None]
